FAERS Safety Report 19289336 (Version 2)
Quarter: 2021Q2

REPORT INFORMATION
  Report Type: Report from Study
  Country: US (occurrence: US)
  Receive Date: 20210521
  Receipt Date: 20210526
  Transmission Date: 20210717
  Serious: Yes (Other)
  Sender: FDA-Public Use
  Company Number: US-MYLANLABS-2021M1002636

PATIENT
  Age: 49 Year
  Sex: Male
  Weight: 141 kg

DRUGS (2)
  1. GLATIRAMER ACETATE INJECTION [Suspect]
     Active Substance: GLATIRAMER ACETATE
     Dosage: 40 MILLIGRAM, 3XW
     Route: 058
  2. GLATIRAMER ACETATE INJECTION [Suspect]
     Active Substance: GLATIRAMER ACETATE
     Indication: MULTIPLE SCLEROSIS
     Dosage: 40 MILLIGRAM, 3XW
     Route: 058
     Dates: start: 20210106, end: 2021

REACTIONS (15)
  - Fatigue [Recovered/Resolved]
  - Neck pain [Recovered/Resolved]
  - Chills [Recovered/Resolved]
  - Chest discomfort [Recovered/Resolved]
  - Injection site warmth [Recovered/Resolved]
  - Discomfort [Unknown]
  - Condition aggravated [Unknown]
  - Back pain [Recovered/Resolved]
  - Heart rate increased [Recovered/Resolved]
  - Disease progression [Unknown]
  - Multiple sclerosis relapse [Unknown]
  - Muscle spasticity [Recovered/Resolved]
  - Injection site pain [Unknown]
  - Hyperhidrosis [Recovered/Resolved]
  - Injection site reaction [Unknown]

NARRATIVE: CASE EVENT DATE: 20210111
